FAERS Safety Report 24418031 (Version 2)
Quarter: 2024Q4

REPORT INFORMATION
  Report Type: Spontaneous
  Country: SG (occurrence: SG)
  Receive Date: 20241009
  Receipt Date: 20241107
  Transmission Date: 20250115
  Serious: Yes (Other)
  Sender: TEVA
  Company Number: SG-TEVA-VS-3250314

PATIENT
  Age: 63 Year
  Sex: Male

DRUGS (6)
  1. PREDNISOLONE [Suspect]
     Active Substance: PREDNISOLONE
     Indication: VEXAS syndrome
     Route: 065
  2. METHOTREXATE [Concomitant]
     Active Substance: METHOTREXATE
     Indication: VEXAS syndrome
     Route: 065
  3. AZATHIOPRINE [Suspect]
     Active Substance: AZATHIOPRINE
     Indication: VEXAS syndrome
     Route: 065
  4. TOCILIZUMAB [Suspect]
     Active Substance: TOCILIZUMAB
     Indication: VEXAS syndrome
     Route: 065
  5. ANAKINRA [Suspect]
     Active Substance: ANAKINRA
     Indication: VEXAS syndrome
     Route: 065
  6. TOFACITINIB [Suspect]
     Active Substance: TOFACITINIB
     Indication: VEXAS syndrome
     Route: 065

REACTIONS (5)
  - Paradoxical drug reaction [Unknown]
  - Drug ineffective [Unknown]
  - Lymphadenopathy [Unknown]
  - Local reaction [Unknown]
  - Anaemia [Unknown]
